FAERS Safety Report 4476757-0 (Version None)
Quarter: 2004Q4

REPORT INFORMATION
  Report Type: 
  Country: None (occurrence: None)
  Receive Date: 20041015
  Receipt Date: 20041015
  Transmission Date: 20050328
  Serious: No
  Sender: FDA-Public Use
  Company Number: None

PATIENT
  Age: 56 Year
  Sex: Female

DRUGS (1)
  1. GENERIC ESTRADIOL [Suspect]
     Indication: MENOPAUSE
     Dosage: 1 MG PO QHS
     Route: 048

REACTIONS (3)
  - HOT FLUSH [None]
  - HYPERHIDROSIS [None]
  - PHARMACEUTICAL PRODUCT COMPLAINT [None]
